FAERS Safety Report 4293950-0 (Version None)
Quarter: 2004Q1

REPORT INFORMATION
  Report Type: 
  Country: None (occurrence: None)
  Receive Date: 20040210
  Receipt Date: 20040203
  Transmission Date: 20041129
  Serious: Yes (Other)
  Sender: FDA-Public Use
  Company Number: 04-02-0188

PATIENT
  Age: 12 Year
  Sex: Female
  Weight: 80.2867 kg

DRUGS (1)
  1. FLUOXETINE [Suspect]
     Indication: DEPRESSION
     Dosage: 20MG ORAL
     Route: 048
     Dates: start: 20030910, end: 20031027

REACTIONS (2)
  - BLINDNESS TRANSIENT [None]
  - MIGRAINE [None]
